FAERS Safety Report 9915554 (Version 2)
Quarter: 2014Q1

REPORT INFORMATION
  Report Type: Spontaneous
  Country: CN (occurrence: CN)
  Receive Date: 20140221
  Receipt Date: 20140221
  Transmission Date: 20141002
  Serious: Yes (Hospitalization, Other)
  Sender: FDA-Public Use
  Company Number: CN-JNJFOC-20120807098

PATIENT
  Age: 24 Year
  Sex: Female

DRUGS (1)
  1. IMODIUM [Suspect]
     Indication: DIARRHOEA
     Route: 048
     Dates: start: 20120731, end: 20120731

REACTIONS (3)
  - Abortion threatened [Recovered/Resolved]
  - Intentional drug misuse [Recovered/Resolved]
  - Exposure during pregnancy [Recovered/Resolved]
